FAERS Safety Report 6748721-X (Version None)
Quarter: 2010Q2

REPORT INFORMATION
  Report Type: 
  Country: None (occurrence: None)
  Receive Date: 20100601
  Receipt Date: 20100518
  Transmission Date: 20101027
  Serious: Yes (Other)
  Sender: FDA-Public Use
  Company Number: PHHY2010NO32395

PATIENT
  Age: 28 Year
  Sex: Female

DRUGS (5)
  1. METOPROLOL TARTRATE [Suspect]
     Dosage: 25 MG, UNK
  2. CANDESARTAN [Suspect]
  3. ASPIRIN [Concomitant]
     Dosage: 75 MG, UNK
  4. BETAMETHASONE [Concomitant]
  5. ATOSIBAN [Concomitant]

REACTIONS (3)
  - DRUG EXPOSURE DURING PREGNANCY [None]
  - OLIGOHYDRAMNIOS [None]
  - PREMATURE LABOUR [None]
